FAERS Safety Report 7772670-1 (Version None)
Quarter: 2011Q3

REPORT INFORMATION
  Report Type: 
  Country: None (occurrence: None)
  Receive Date: 20110922
  Receipt Date: 20110722
  Transmission Date: 20111222
  Serious: No
  Sender: FDA-Public Use
  Company Number: US-ASTRAZENECA-2011SE44082

PATIENT
  Age: 78 Year
  Sex: Female

DRUGS (2)
  1. SEROQUEL [Suspect]
     Indication: SLEEP DISORDER
     Route: 048
  2. NEURONTIN [Concomitant]

REACTIONS (3)
  - FIBROMYALGIA [None]
  - POST POLIO SYNDROME [None]
  - THERAPEUTIC RESPONSE UNEXPECTED [None]
